FAERS Safety Report 17136548 (Version 1)
Quarter: 2019Q4

REPORT INFORMATION
  Report Type: Spontaneous
  Country: US (occurrence: US)
  Receive Date: 20191210
  Receipt Date: 20191210
  Transmission Date: 20200122
  Serious: No
  Sender: FDA-Public Use
  Company Number: US-SA-2019SA342100

PATIENT
  Age: 71 Year
  Sex: Male

DRUGS (4)
  1. CRESTOR [Concomitant]
     Active Substance: ROSUVASTATIN CALCIUM
     Indication: BLOOD CHOLESTEROL ABNORMAL
  2. BRILINTA [Concomitant]
     Active Substance: TICAGRELOR
     Indication: BLOOD CHOLESTEROL ABNORMAL
  3. PRALUENT [Suspect]
     Active Substance: ALIROCUMAB
     Indication: BLOOD CHOLESTEROL INCREASED
     Dosage: 75 MG, QOW
     Dates: start: 2019
  4. ZETIA [Concomitant]
     Active Substance: EZETIMIBE
     Indication: BLOOD CHOLESTEROL ABNORMAL

REACTIONS (6)
  - Musculoskeletal stiffness [Unknown]
  - Peripheral swelling [Recovering/Resolving]
  - Muscular weakness [Recovering/Resolving]
  - Pain in extremity [Unknown]
  - Hypokinesia [Recovering/Resolving]
  - Musculoskeletal pain [Unknown]

NARRATIVE: CASE EVENT DATE: 20191207
